FAERS Safety Report 14996928 (Version 2)
Quarter: 2018Q3

REPORT INFORMATION
  Report Type: Spontaneous
  Country: US (occurrence: US)
  Receive Date: 20180611
  Receipt Date: 20180712
  Transmission Date: 20181010
  Serious: Yes (Death)
  Sender: FDA-Public Use
  Company Number: US-ALKERMES INC.-ALK-2018-003058

PATIENT
  Age: 61 Year
  Sex: Male
  Weight: 66.21 kg

DRUGS (1)
  1. VIVITROL [Suspect]
     Active Substance: NALTREXONE
     Indication: DRUG DEPENDENCE
     Dosage: 380 MG, QMO
     Route: 030
     Dates: start: 20171211, end: 20180205

REACTIONS (3)
  - Lung neoplasm malignant [Fatal]
  - Jaundice [Not Recovered/Not Resolved]
  - Colon cancer metastatic [Fatal]

NARRATIVE: CASE EVENT DATE: 20180327
